FAERS Safety Report 5744335-9 (Version None)
Quarter: 2008Q2

REPORT INFORMATION
  Report Type: 
  Country: None (occurrence: None)
  Receive Date: 20080520
  Receipt Date: 20080508
  Transmission Date: 20081010
  Serious: Yes (Hospitalization, Other)
  Sender: FDA-Public Use
  Company Number: US-ELI_LILLY_AND_COMPANY-US200805001626

PATIENT
  Sex: Female

DRUGS (11)
  1. FORTEO [Suspect]
     Indication: OSTEOPOROSIS
     Dosage: UNK, UNK
     Dates: start: 20060801
  2. FORTEO [Suspect]
  3. MIDODRINE [Concomitant]
     Indication: HYPOTENSION
  4. FLUDROCORTISONE ACETATE [Concomitant]
     Indication: HYPOTENSION
  5. LIPITOR [Concomitant]
  6. ASPIRIN [Concomitant]
  7. PRILOSEC [Concomitant]
  8. MULTI-VITAMIN [Concomitant]
  9. FISH OIL [Concomitant]
     Dosage: 1000 MG, UNK
  10. POTASSIUM CHLORIDE [Concomitant]
     Dosage: 595 MG, UNK
  11. CALCIUM WITH VITAMIN D [Concomitant]
     Dosage: 600 MG, 2/D

REACTIONS (1)
  - MITRAL VALVE REPAIR [None]
